FAERS Safety Report 8357652-3 (Version None)
Quarter: 2012Q2

REPORT INFORMATION
  Report Type: 
  Country: None (occurrence: None)
  Receive Date: 20120514
  Receipt Date: 20110712
  Transmission Date: 20120825
  Serious: No
  Sender: FDA-Public Use
  Company Number: US-TEVA-2011003699

PATIENT
  Sex: Female
  Weight: 80.812 kg

DRUGS (3)
  1. NUVIGIL [Suspect]
     Route: 048
     Dates: start: 20110712, end: 20110712
  2. ROXICODONE [Concomitant]
     Dates: start: 20100101
  3. ALPRAZOLAM [Concomitant]

REACTIONS (3)
  - DRUG DISPENSING ERROR [None]
  - DIZZINESS [None]
  - PALPITATIONS [None]
